FAERS Safety Report 6547324-X (Version None)
Quarter: 2010Q1

REPORT INFORMATION
  Report Type: 
  Country: None (occurrence: None)
  Receive Date: 20100122
  Receipt Date: 20100111
  Transmission Date: 20100710
  Serious: Yes (Hospitalization, Congenital Anomaly)
  Sender: FDA-Public Use
  Company Number: FR-KINGPHARMUSA00001-K201000032

PATIENT
  Age: 1 Day
  Sex: Male
  Weight: 1.54 kg

DRUGS (10)
  1. ALTACE [Suspect]
     Dosage: 5 MG, QD
     Route: 064
     Dates: end: 20090916
  2. PLAVIX [Suspect]
     Dosage: 75 MG, QD
     Route: 064
     Dates: end: 20090916
  3. LANTUS [Suspect]
     Dosage: UNK
     Route: 064
  4. TAHOR [Suspect]
     Dosage: 80 MG, QD
     Route: 064
     Dates: end: 20090916
  5. METFORMIN [Suspect]
     Dosage: 3 G, QD
     Route: 062
     Dates: end: 20090916
  6. HUMALOG [Suspect]
     Dosage: UNK
     Route: 064
  7. ALLOPURINOL [Suspect]
     Dosage: 200 MG, QD
     Route: 064
  8. KARDEGIC [Concomitant]
     Dosage: 160 MG, UNK
     Route: 064
  9. ATENOLOL [Concomitant]
     Dosage: 200 MG, QD
     Dates: start: 20090916
  10. OMACOR [Suspect]
     Dosage: UNK
     Dates: start: 20090916

REACTIONS (9)
  - CAESAREAN SECTION [None]
  - DRUG EXPOSURE DURING PREGNANCY [None]
  - FOETAL CEREBROVASCULAR DISORDER [None]
  - FOETAL GROWTH RETARDATION [None]
  - HYPOGLYCAEMIA NEONATAL [None]
  - JAUNDICE NEONATAL [None]
  - NEONATAL RESPIRATORY DISTRESS SYNDROME [None]
  - PLACENTAL DISORDER [None]
  - PREMATURE BABY [None]
